FAERS Safety Report 25120597 (Version 1)
Quarter: 2025Q1

REPORT INFORMATION
  Report Type: Spontaneous
  Country: BE (occurrence: BE)
  Receive Date: 20250325
  Receipt Date: 20250325
  Transmission Date: 20250409
  Serious: Yes (Death)
  Sender: NOVARTIS
  Company Number: BE-002147023-NVSC2025BE049182

PATIENT
  Age: 37 Year
  Sex: Male

DRUGS (12)
  1. PAZOPANIB [Suspect]
     Active Substance: PAZOPANIB
     Indication: Sertoli cell testicular tumour
     Route: 065
  2. PAZOPANIB [Suspect]
     Active Substance: PAZOPANIB
     Indication: Metastases to pleura
  3. PAZOPANIB [Suspect]
     Active Substance: PAZOPANIB
     Indication: Metastases to lung
  4. PAZOPANIB [Suspect]
     Active Substance: PAZOPANIB
     Indication: Metastases to bone
  5. PACLITAXEL [Suspect]
     Active Substance: PACLITAXEL
     Indication: Sertoli cell testicular tumour
     Route: 065
  6. PACLITAXEL [Suspect]
     Active Substance: PACLITAXEL
     Indication: Metastases to pleura
  7. PACLITAXEL [Suspect]
     Active Substance: PACLITAXEL
     Indication: Metastases to lung
  8. PACLITAXEL [Suspect]
     Active Substance: PACLITAXEL
     Indication: Metastases to bone
  9. AXITINIB [Suspect]
     Active Substance: AXITINIB
     Indication: Sertoli cell testicular tumour
     Route: 065
  10. AXITINIB [Suspect]
     Active Substance: AXITINIB
     Indication: Metastases to pleura
  11. AXITINIB [Suspect]
     Active Substance: AXITINIB
     Indication: Metastases to lung
  12. AXITINIB [Suspect]
     Active Substance: AXITINIB
     Indication: Metastases to bone

REACTIONS (5)
  - Malignant neoplasm progression [Fatal]
  - Sertoli cell testicular tumour [Fatal]
  - Metastases to pleura [Fatal]
  - Metastases to bone [Fatal]
  - Metastases to lung [Fatal]
